FAERS Safety Report 15542195 (Version 1)
Quarter: 2018Q4

REPORT INFORMATION
  Report Type: Spontaneous
  Country: US (occurrence: US)
  Receive Date: 20181023
  Receipt Date: 20181023
  Transmission Date: 20190205
  Serious: No
  Sender: FDA-Public Use
  Company Number: US-ABBVIE-18P-163-2215579-00

PATIENT
  Sex: Female

DRUGS (1)
  1. LUPRON [Suspect]
     Active Substance: LEUPROLIDE ACETATE
     Indication: UTERINE LEIOMYOMA
     Route: 065

REACTIONS (9)
  - Pelvic pain [Unknown]
  - Menorrhagia [Unknown]
  - Irritability [Unknown]
  - Abdominal distension [Unknown]
  - Depressed mood [Unknown]
  - Abdominal pain [Unknown]
  - Menstruation irregular [Unknown]
  - Mood swings [Unknown]
  - Emotional distress [Unknown]
